FAERS Safety Report 4621675-8 (Version None)
Quarter: 2005Q1

REPORT INFORMATION
  Report Type: 
  Country: None (occurrence: None)
  Receive Date: 20050328
  Receipt Date: 20050311
  Transmission Date: 20050727
  Serious: Yes (Hospitalization, Disabling)
  Sender: FDA-Public Use
  Company Number: 2005028019

PATIENT
  Age: 62 Year
  Sex: Female
  Weight: 80.2867 kg

DRUGS (1)
  1. CAMPTOSAR [Suspect]
     Indication: BREAST CANCER
     Dosage: 60 MG/M*2 (CYCLIC INTERVAL:DAILY), ORAL
     Route: 048
     Dates: start: 20041015, end: 20050125

REACTIONS (8)
  - ABDOMINAL PAIN [None]
  - BREAST CANCER [None]
  - DEHYDRATION [None]
  - HYPERCOAGULATION [None]
  - MALIGNANT NEOPLASM PROGRESSION [None]
  - NAUSEA [None]
  - RENAL INFARCT [None]
  - VOMITING [None]
